FAERS Safety Report 12527112 (Version 3)
Quarter: 2016Q3

REPORT INFORMATION
  Report Type: Spontaneous
  Country: US (occurrence: US)
  Receive Date: 20160705
  Receipt Date: 20160728
  Transmission Date: 20161109
  Serious: Yes (Other)
  Sender: FDA-Public Use
  Company Number: US-GLAXOSMITHKLINE-US2016GSK094515

PATIENT
  Age: 47 Year
  Sex: Male
  Weight: 86.62 kg

DRUGS (1)
  1. LAMICTAL [Suspect]
     Active Substance: LAMOTRIGINE
     Indication: SEIZURE
     Dosage: 200 MG, UNK
     Route: 048
     Dates: start: 20140404, end: 20160706

REACTIONS (7)
  - Seizure [Unknown]
  - Loss of consciousness [Unknown]
  - Impaired driving ability [Unknown]
  - Drug dose omission [Unknown]
  - Memory impairment [Unknown]
  - Disorientation [Unknown]
  - Somnolence [Unknown]

NARRATIVE: CASE EVENT DATE: 20160707
